FAERS Safety Report 14310620 (Version 1)
Quarter: 2017Q4

REPORT INFORMATION
  Report Type: Spontaneous
  Country: US (occurrence: US)
  Receive Date: 20171220
  Receipt Date: 20171220
  Transmission Date: 20180321
  Serious: Yes (Hospitalization, Other)
  Sender: FDA-Public Use
  Company Number: US-INTERNATIONAL MEDICATION SYSTEMS, LIMITED-2037503

PATIENT
  Age: 59 Year
  Sex: Male
  Weight: 141.2 kg

DRUGS (2)
  1. LIDOCAINE HYDROCHLORIDE. [Suspect]
     Active Substance: LIDOCAINE HYDROCHLORIDE
     Indication: LOCAL ANAESTHESIA
     Route: 061
     Dates: start: 20171116, end: 20171116
  2. LIDOCAINE HYDROCHLORIDE. [Suspect]
     Active Substance: LIDOCAINE HYDROCHLORIDE
     Indication: ECHOCARDIOGRAM
     Route: 061
     Dates: start: 20171116, end: 20171116

REACTIONS (2)
  - Foreign body in respiratory tract [Recovered/Resolved]
  - Removal of foreign body from larynx [Recovered/Resolved]

NARRATIVE: CASE EVENT DATE: 20171116
